FAERS Safety Report 17870937 (Version 1)
Quarter: 2020Q2

REPORT INFORMATION
  Report Type: Spontaneous
  Country: US (occurrence: US)
  Receive Date: 20200605
  Receipt Date: 20200605
  Transmission Date: 20200714
  Serious: Yes (Death)
  Sender: FDA-Public Use
  Company Number: None

PATIENT
  Age: 73 Year
  Sex: Male

DRUGS (11)
  1. BACTRIM [Concomitant]
     Active Substance: SULFAMETHOXAZOLE\TRIMETHOPRIM
  2. COLACE [Concomitant]
     Active Substance: DOCUSATE SODIUM
  3. SMZ/TMP [Concomitant]
     Active Substance: SULFAMETHOXAZOLE\TRIMETHOPRIM
  4. TACROLIMUS, 1 MG [Suspect]
     Active Substance: TACROLIMUS
     Indication: RENAL TRANSPLANT
     Route: 048
     Dates: start: 20181212
  5. ASPIRIN. [Concomitant]
     Active Substance: ASPIRIN
  6. LEXAPRO [Concomitant]
     Active Substance: ESCITALOPRAM OXALATE
  7. FERROUS SULFATE. [Concomitant]
     Active Substance: FERROUS SULFATE
  8. LANOXIN [Concomitant]
     Active Substance: DIGOXIN
  9. MAG OXIDE [Concomitant]
     Active Substance: MAGNESIUM OXIDE
  10. CELLCEPT [Concomitant]
     Active Substance: MYCOPHENOLATE MOFETIL\MYCOPHENOLATE MOFETIL HYDROCHLORIDE
  11. PROGAF [Concomitant]

REACTIONS (1)
  - Death [None]

NARRATIVE: CASE EVENT DATE: 20190520
